FAERS Safety Report 14924238 (Version 1)
Quarter: 2018Q2

REPORT INFORMATION
  Report Type: Report from Study
  Country: US (occurrence: US)
  Receive Date: 20180522
  Receipt Date: 20180522
  Transmission Date: 20180711
  Serious: Yes (Death)
  Sender: FDA-Public Use
  Company Number: US-PFIZER INC-2018206676

PATIENT

DRUGS (2)
  1. ISOPROTERENOL HCL [Suspect]
     Active Substance: ISOPROTERENOL HYDROCHLORIDE
     Indication: MYOCARDIAL INFARCTION
  2. ISOPROTERENOL HCL [Suspect]
     Active Substance: ISOPROTERENOL HYDROCHLORIDE
     Indication: SHOCK
     Dosage: UNK (1/UG TO 7UG/MIN, AVERAGING 4.4 UG/MIN)
     Route: 042

REACTIONS (1)
  - Drug ineffective [Fatal]
